FAERS Safety Report 16077349 (Version 3)
Quarter: 2019Q2

REPORT INFORMATION
  Report Type: Report from Study
  Country: US (occurrence: US)
  Receive Date: 20190315
  Receipt Date: 20190418
  Transmission Date: 20190711
  Serious: Yes (Hospitalization, Disabling, Other)
  Sender: FDA-Public Use
  Company Number: PHEH2019US010909

PATIENT
  Age: 75 Year
  Sex: Male
  Weight: 103.8 kg

DRUGS (1)
  1. OMNITROPE [Suspect]
     Active Substance: SOMATROPIN
     Indication: HYPOPITUITARISM
     Dosage: 0.2 MG, UNK
     Route: 058
     Dates: start: 201202, end: 201903

REACTIONS (3)
  - Skin cancer [Unknown]
  - Squamous cell carcinoma [Recovering/Resolving]
  - Neck mass [Unknown]

NARRATIVE: CASE EVENT DATE: 20180905
